FAERS Safety Report 4457671-3 (Version None)
Quarter: 2004Q3

REPORT INFORMATION
  Report Type: 
  Country: None (occurrence: None)
  Receive Date: 20040922
  Receipt Date: 20040916
  Transmission Date: 20050211
  Serious: Yes (Hospitalization)
  Sender: FDA-Public Use
  Company Number: MK200409-0143-1

PATIENT
  Age: 33 Year
  Sex: Female

DRUGS (1)
  1. ANAFRANIL [Suspect]
     Dosage: 50MG, DAILY

REACTIONS (4)
  - DRUG EXPOSURE DURING PREGNANCY [None]
  - NEPHROTIC SYNDROME [None]
  - PRE-ECLAMPSIA [None]
  - PREGNANCY [None]
